FAERS Safety Report 21661373 (Version 1)
Quarter: 2022Q4

REPORT INFORMATION
  Report Type: Spontaneous
  Country: QA (occurrence: QA)
  Receive Date: 20221130
  Receipt Date: 20221130
  Transmission Date: 20230112
  Serious: Yes (Hospitalization, Other)
  Sender: FDA-Public Use
  Company Number: QA-Accord-285325

PATIENT
  Age: 45 Year
  Sex: Male

DRUGS (2)
  1. CISPLATIN [Suspect]
     Active Substance: CISPLATIN
     Indication: Small cell lung cancer
     Dosage: THEN RE-CHALLENGED
     Route: 042
  2. ETOPOSIDE [Concomitant]
     Active Substance: ETOPOSIDE
     Indication: Small cell lung cancer
     Dosage: ON DAY 1,100MG/M2 INTRAVENOUSLY FOR DAYS 2 AND 3, THEN RE-CHALLENGED
     Route: 042

REACTIONS (3)
  - Cerebrovascular accident [Recovered/Resolved]
  - Cerebral infarction [Recovering/Resolving]
  - Arterial thrombosis [Recovering/Resolving]
